FAERS Safety Report 23797055 (Version 1)
Quarter: 2024Q2

REPORT INFORMATION
  Report Type: Spontaneous
  Country: SI (occurrence: SI)
  Receive Date: 20240430
  Receipt Date: 20240430
  Transmission Date: 20240715
  Serious: Yes (Disabling)
  Sender: FDA-Public Use
  Company Number: None

PATIENT
  Age: 72 Year
  Sex: Female

DRUGS (1)
  1. BONVIVA [Suspect]
     Active Substance: IBANDRONATE SODIUM
     Indication: Osteoporosis
     Dosage: FILM COATED TABLET
     Route: 048
     Dates: start: 20200210, end: 202203

REACTIONS (2)
  - Osteonecrosis [Unknown]
  - Peri-implantitis [Unknown]

NARRATIVE: CASE EVENT DATE: 20220505
